FAERS Safety Report 14772370 (Version 3)
Quarter: 2018Q2

REPORT INFORMATION
  Report Type: Spontaneous
  Country: RU (occurrence: RU)
  Receive Date: 20180418
  Receipt Date: 20180509
  Transmission Date: 20180711
  Serious: Yes (Other)
  Sender: FDA-Public Use
  Company Number: RU-ROCHE-2107565

PATIENT
  Age: 44 Year
  Sex: Female

DRUGS (6)
  1. MABTHERA [Suspect]
     Active Substance: RITUXIMAB
     Indication: GRANULOMATOSIS WITH POLYANGIITIS
     Dosage: 500 MG TWICE
     Route: 042
     Dates: start: 20160803
  2. OMEPRAZOLE. [Concomitant]
     Active Substance: OMEPRAZOLE
  3. PREDNISOLONE. [Concomitant]
     Active Substance: PREDNISOLONE
  4. KETOROLAK [Concomitant]
  5. MABTHERA [Suspect]
     Active Substance: RITUXIMAB
     Route: 042
     Dates: start: 201709
  6. VARFARINE [Concomitant]
     Active Substance: WARFARIN SODIUM

REACTIONS (5)
  - Lipodystrophy acquired [Unknown]
  - Aspartate aminotransferase increased [Not Recovered/Not Resolved]
  - Gastrointestinal disorder [Unknown]
  - Gastric mucosa erythema [Unknown]
  - Alanine aminotransferase increased [Not Recovered/Not Resolved]

NARRATIVE: CASE EVENT DATE: 201709
